FAERS Safety Report 6191017-8 (Version None)
Quarter: 2009Q2

REPORT INFORMATION
  Report Type: 
  Country: None (occurrence: None)
  Receive Date: 20090513
  Receipt Date: 20090430
  Transmission Date: 20091009
  Serious: Yes (Other)
  Sender: FDA-Public Use
  Company Number: OPER20090096

PATIENT

DRUGS (1)
  1. OPANA ER [Suspect]
     Dosage: INTRA-NASAL
     Route: 045

REACTIONS (3)
  - DRUG ABUSE [None]
  - EUPHORIC MOOD [None]
  - INCORRECT ROUTE OF DRUG ADMINISTRATION [None]
